FAERS Safety Report 9202735 (Version 1)
Quarter: 2013Q2

REPORT INFORMATION
  Report Type: Spontaneous
  Country: JP (occurrence: JP)
  Receive Date: 20130401
  Receipt Date: 20130401
  Transmission Date: 20140414
  Serious: Yes (Other)
  Sender: FDA-Public Use
  Company Number: JP-MYLANLABS-2013S1006061

PATIENT
  Age: 70 Year
  Sex: Male
  Weight: 56 kg

DRUGS (3)
  1. ITRACONAZOLE [Suspect]
     Indication: ANTIFUNGAL PROPHYLAXIS
     Dosage: 200MG
     Route: 048
     Dates: start: 201008
  2. BORTEZOMIB [Interacting]
     Indication: PLASMA CELL MYELOMA
     Dosage: 1.3 MG/M2 ON DAY 1, 4, 8 AND 11
     Route: 065
     Dates: start: 201008
  3. DEXAMETHASONE [Concomitant]
     Indication: PLASMA CELL MYELOMA
     Dosage: 20 MG/BODY ON DAY 1, 2, 4, 5, 8, 9, 11 AND 12
     Route: 065
     Dates: start: 201008

REACTIONS (2)
  - Ileus paralytic [Recovered/Resolved]
  - Drug interaction [Recovered/Resolved]
